FAERS Safety Report 19367265 (Version 1)
Quarter: 2021Q2

REPORT INFORMATION
  Report Type: Spontaneous
  Country: US (occurrence: US)
  Receive Date: 20210603
  Receipt Date: 20210603
  Transmission Date: 20210717
  Serious: Yes (Other)
  Sender: FDA-Public Use
  Company Number: US-ASTRAZENECA-2021A478843

PATIENT
  Sex: Female

DRUGS (4)
  1. ZOLADEX [Suspect]
     Active Substance: GOSERELIN ACETATE
     Route: 058
  2. LETROZOLE. [Concomitant]
     Active Substance: LETROZOLE
  3. PALBOCICLIB [Concomitant]
     Active Substance: PALBOCICLIB
  4. OLAPARIB. [Suspect]
     Active Substance: OLAPARIB
     Route: 048

REACTIONS (4)
  - Malignant neoplasm progression [Unknown]
  - RET gene mutation [Unknown]
  - EGFR gene mutation [Unknown]
  - BRCA2 gene mutation [Unknown]
